FAERS Safety Report 6895126-7 (Version None)
Quarter: 2010Q3

REPORT INFORMATION
  Report Type: 
  Country: None (occurrence: None)
  Receive Date: 20100802
  Receipt Date: 20100729
  Transmission Date: 20110219
  Serious: Yes (Life-Threatening)
  Sender: FDA-Public Use
  Company Number: CHPA2010DE12286

PATIENT
  Sex: Male

DRUGS (1)
  1. SCOPOLAMINE [Suspect]
     Indication: SALIVARY HYPERSECRETION
     Dosage: UNK, UNK, ^SINCE A LONGER TIME^
     Route: 062

REACTIONS (3)
  - ANTICHOLINERGIC SYNDROME [None]
  - OFF LABEL USE [None]
  - SOMNOLENCE [None]
